FAERS Safety Report 4972403-8 (Version None)
Quarter: 2006Q2

REPORT INFORMATION
  Report Type: 
  Country: None (occurrence: None)
  Receive Date: 20060413
  Receipt Date: 20041123
  Transmission Date: 20061013
  Serious: Yes (Hospitalization)
  Sender: FDA-Public Use
  Company Number: US-MERCK-0411USA03734

PATIENT
  Age: 61 Year
  Sex: Female
  Weight: 91 kg

DRUGS (15)
  1. VIOXX [Suspect]
     Indication: OSTEOARTHRITIS
     Route: 048
     Dates: start: 20000314, end: 20040914
  2. VIOXX [Suspect]
     Indication: ARTHRALGIA
     Route: 048
     Dates: start: 20000314, end: 20040914
  3. ULTRAM [Concomitant]
     Route: 065
  4. PREMARIN [Concomitant]
     Route: 065
  5. MONOPRIL [Concomitant]
     Route: 065
  6. ZOLOFT [Concomitant]
     Route: 065
  7. LESCOL [Concomitant]
     Route: 065
  8. NORVASC [Concomitant]
     Route: 065
  9. RELAFEN [Concomitant]
     Route: 065
  10. LIPITOR [Concomitant]
     Route: 065
  11. KETOROLAC TROMETHAMINE [Concomitant]
     Route: 065
  12. AMARYL [Concomitant]
     Route: 065
  13. GLUCOPHAGE [Concomitant]
     Route: 065
  14. COUMADIN [Concomitant]
     Route: 065
  15. DIGITEK [Concomitant]
     Route: 065

REACTIONS (15)
  - ATRIOVENTRICULAR BLOCK FIRST DEGREE [None]
  - BUNDLE BRANCH BLOCK LEFT [None]
  - BUNDLE BRANCH BLOCK RIGHT [None]
  - BUNION OPERATION [None]
  - CALCULUS URETERIC [None]
  - CARDIO-RESPIRATORY ARREST [None]
  - CEREBROVASCULAR ACCIDENT [None]
  - CHOLELITHIASIS [None]
  - DEEP VEIN THROMBOSIS [None]
  - FALL [None]
  - FOOT OPERATION [None]
  - KNEE ARTHROPLASTY [None]
  - RENAL COLIC [None]
  - SICK SINUS SYNDROME [None]
  - TRIFASCICULAR BLOCK [None]
